FAERS Safety Report 10028872 (Version 2)
Quarter: 2014Q2

REPORT INFORMATION
  Report Type: Spontaneous
  Country: US (occurrence: US)
  Receive Date: 20140321
  Receipt Date: 20140520
  Transmission Date: 20141212
  Serious: Yes (Other)
  Sender: FDA-Public Use
  Company Number: US-ELI_LILLY_AND_COMPANY-US201403004816

PATIENT
  Age: 60 Year
  Sex: Female
  Weight: 61.22 kg

DRUGS (15)
  1. EFFIENT [Suspect]
     Indication: STENT PLACEMENT
     Dosage: 10 MG, QD
     Route: 048
     Dates: start: 20130830, end: 20140313
  2. ASA [Concomitant]
     Dosage: 325 MG, UNK
  3. ATORVASTATIN [Concomitant]
     Dosage: 80 MG, QD
  4. COREG [Concomitant]
     Dosage: 12.5 MG, QD
  5. CHLORTHALIDONE [Concomitant]
     Dosage: 50 MG, QD
  6. DICYCLOMINE [Concomitant]
     Dosage: 20 MG, BID
  7. ESTRADIOL [Concomitant]
     Dosage: 0.5 MG, QD
  8. FENOFIBRATE [Concomitant]
     Dosage: 54 MG, QD
  9. MAGNESIUM OXIDE [Concomitant]
     Dosage: 400 MG, BID
  10. MUPIROCIN [Concomitant]
     Dosage: 2 %, UNK
  11. OMEPRAZOLE [Concomitant]
     Dosage: 20 MG, QD
  12. POTASSIUM [Concomitant]
     Dosage: 99 MG, QD
  13. PROMETHAZINE [Concomitant]
     Dosage: UNK, PRN
     Route: 054
  14. SONATA                             /01454001/ [Concomitant]
     Dosage: 5 MG, EVERY HOUR
  15. VITAMIN D3 [Concomitant]
     Route: 048

REACTIONS (2)
  - Alanine aminotransferase increased [Recovering/Resolving]
  - Aspartate aminotransferase increased [Recovering/Resolving]
